FAERS Safety Report 23283448 (Version 2)
Quarter: 2024Q1

REPORT INFORMATION
  Report Type: Spontaneous
  Country: US (occurrence: None)
  Receive Date: 20231211
  Receipt Date: 20240109
  Transmission Date: 20240409
  Serious: Yes (Hospitalization, Other)
  Sender: FDA-Public Use
  Company Number: US-FARMAPROD-202312-3550

PATIENT
  Age: 72 Year
  Sex: Female

DRUGS (19)
  1. OXERVATE [Suspect]
     Active Substance: CENEGERMIN-BKBJ
     Indication: Neurotrophic keratopathy
     Route: 047
     Dates: start: 20231117, end: 20231219
  2. CARVEDILOL [Concomitant]
     Active Substance: CARVEDILOL
  3. MAGNESIUM OXIDE [Concomitant]
     Active Substance: MAGNESIUM OXIDE
  4. SPIRONOLACTONE [Concomitant]
     Active Substance: SPIRONOLACTONE
  5. REFRESH OPTIVE [Concomitant]
     Active Substance: CARBOXYMETHYLCELLULOSE SODIUM\GLYCERIN
     Dosage: 0.5%-0.9%
  6. PROZAC [Concomitant]
     Active Substance: FLUOXETINE HYDROCHLORIDE
  7. LEVOTHYROXINE SODIUM [Concomitant]
     Active Substance: LEVOTHYROXINE SODIUM
  8. PIOGLITAZONE [Concomitant]
     Active Substance: PIOGLITAZONE
  9. TELMISARTAN [Concomitant]
     Active Substance: TELMISARTAN
  10. PRIMIDONE [Concomitant]
     Active Substance: PRIMIDONE
  11. HYDRALAZINE HCL [Concomitant]
     Active Substance: HYDRALAZINE HYDROCHLORIDE
  12. CELECOXIB [Concomitant]
     Active Substance: CELECOXIB
  13. MONTELUKAST SODIUM [Concomitant]
     Active Substance: MONTELUKAST SODIUM
  14. CLONAZEPAM [Concomitant]
     Active Substance: CLONAZEPAM
  15. PROKERA [Concomitant]
  16. ZYRTEC [Concomitant]
     Active Substance: CETIRIZINE HYDROCHLORIDE
  17. CLONIDINE [Concomitant]
     Active Substance: CLONIDINE
  18. INSULIN NOS [Concomitant]
     Active Substance: INSULIN NOS
  19. LYRICA [Concomitant]
     Active Substance: PREGABALIN

REACTIONS (8)
  - Ophthalmic herpes simplex [Unknown]
  - Hypertension [Unknown]
  - Wrong technique in product usage process [Unknown]
  - Intraocular pressure increased [Recovering/Resolving]
  - Keratitis [Recovered/Resolved with Sequelae]
  - Visual acuity reduced [Not Recovered/Not Resolved]
  - Eye pain [Not Recovered/Not Resolved]
  - Ocular hyperaemia [Not Recovered/Not Resolved]

NARRATIVE: CASE EVENT DATE: 20231201
